FAERS Safety Report 7994349-3 (Version None)
Quarter: 2011Q4

REPORT INFORMATION
  Report Type: 
  Country: None (occurrence: None)
  Receive Date: 20111220
  Receipt Date: 20110610
  Transmission Date: 20120403
  Serious: No
  Sender: FDA-Public Use
  Company Number: US-GLAXOSMITHKLINE-A0931155A

PATIENT
  Age: 53 Year
  Sex: Female

DRUGS (4)
  1. ATENOLOL [Concomitant]
  2. MULTI-VITAMIN [Concomitant]
  3. SORIATANE [Suspect]
     Indication: PSORIASIS
     Dosage: 10MG PER DAY
     Route: 048
     Dates: start: 20101201, end: 20110609
  4. ZOLOFT [Concomitant]

REACTIONS (7)
  - PRURITUS [None]
  - DEPRESSION [None]
  - ALOPECIA [None]
  - MOOD SWINGS [None]
  - JOINT STIFFNESS [None]
  - VISION BLURRED [None]
  - DRUG INEFFECTIVE [None]
